FAERS Safety Report 14239309 (Version 3)
Quarter: 2018Q2

REPORT INFORMATION
  Report Type: Report from Study
  Country: US (occurrence: US)
  Receive Date: 20171130
  Receipt Date: 20180502
  Transmission Date: 20180711
  Serious: Yes (Other)
  Sender: FDA-Public Use
  Company Number: PHHO2017US015936

PATIENT
  Age: 67 Year
  Sex: Male
  Weight: 104.8 kg

DRUGS (4)
  1. KYMRIAH [Suspect]
     Active Substance: TISAGENLECLEUCEL
     Indication: CHRONIC LYMPHOCYTIC LEUKAEMIA
     Dosage: 1E9 (2.91E8) TRANSDUCED
     Route: 042
     Dates: start: 20130312, end: 20130312
  2. SULFAMETHOXAZOLE AND TRIMETHOPRIM [Concomitant]
     Active Substance: SULFAMETHOXAZOLE\TRIMETHOPRIM
     Indication: CHRONIC SINUSITIS
     Dosage: 800-160 MG
     Route: 065
  3. FLUTICASONE. [Concomitant]
     Active Substance: FLUTICASONE
     Indication: CHRONIC SINUSITIS
     Dosage: 50 UG /  ACT
     Route: 045
  4. IZ IVIG [Concomitant]
     Indication: PRODUCT USED FOR UNKNOWN INDICATION
     Route: 065

REACTIONS (2)
  - Second primary malignancy [Recovered/Resolved]
  - Thymoma [Recovered/Resolved]

NARRATIVE: CASE EVENT DATE: 20171108
